FAERS Safety Report 8383638-9 (Version None)
Quarter: 2012Q2

REPORT INFORMATION
  Report Type: 
  Country: None (occurrence: None)
  Receive Date: 20120524
  Receipt Date: 20120515
  Transmission Date: 20120825
  Serious: No
  Sender: FDA-Public Use
  Company Number: US-ROXANE LABORATORIES, INC.-2012-RO-01260RO

PATIENT
  Age: 54 Year
  Sex: Male

DRUGS (1)
  1. MERCAPTOPURINE [Suspect]
     Indication: CROHN'S DISEASE
     Dosage: 75 MG
     Route: 048
     Dates: start: 20110101

REACTIONS (3)
  - ALOPECIA [None]
  - SKIN DISORDER [None]
  - PRURITUS [None]
